FAERS Safety Report 23530877 (Version 4)
Quarter: 2024Q1

REPORT INFORMATION
  Report Type: Report from Study
  Country: CA (occurrence: CA)
  Receive Date: 20240216
  Receipt Date: 20240309
  Transmission Date: 20240410
  Serious: Yes (Hospitalization)
  Sender: FDA-Public Use
  Company Number: CA-JNJFOC-20240230892

PATIENT
  Age: 48 Year
  Sex: Female

DRUGS (9)
  1. EPOPROSTENOL SODIUM [Suspect]
     Active Substance: EPOPROSTENOL SODIUM
     Indication: Pulmonary hypertension
     Route: 042
     Dates: start: 20231211
  2. EPOPROSTENOL SODIUM [Suspect]
     Active Substance: EPOPROSTENOL SODIUM
     Indication: Pulmonary hypertension
  3. AMBRISENTAN [Concomitant]
     Active Substance: AMBRISENTAN
  4. ADCIRCA [Concomitant]
     Active Substance: TADALAFIL
  5. PERINDOPRIL [Concomitant]
     Active Substance: PERINDOPRIL
  6. LASIX [Concomitant]
     Active Substance: FUROSEMIDE
  7. VITAMIN D3 [Concomitant]
     Active Substance: CHOLECALCIFEROL
  8. CLINDAMYCIN [Concomitant]
     Active Substance: CLINDAMYCIN
  9. POTASSIUM [Concomitant]
     Active Substance: POTASSIUM

REACTIONS (5)
  - Device occlusion [Not Recovered/Not Resolved]
  - Catheter site related reaction [Unknown]
  - Product administration interrupted [Unknown]
  - Skin irritation [Unknown]
  - Wound [Unknown]

NARRATIVE: CASE EVENT DATE: 20240209
